FAERS Safety Report 8574022 (Version 20)
Quarter: 2015Q3

REPORT INFORMATION
  Report Type: Spontaneous
  Country: US (occurrence: US)
  Receive Date: 20120522
  Receipt Date: 20150821
  Transmission Date: 20151125
  Serious: Yes (Hospitalization, Other)
  Sender: FDA-Public Use
  Company Number: US-GLAXOSMITHKLINE-A0978303A

PATIENT
  Age: 54 Year
  Sex: Male
  Weight: 108.84 kg

DRUGS (23)
  1. FLOLAN [Suspect]
     Active Substance: EPOPROSTENOL SODIUM
     Dosage: UNK
     Dates: start: 20100518
  2. FLOLAN [Suspect]
     Active Substance: EPOPROSTENOL SODIUM
     Dosage: VIAL STRENGTH: 1.5 MG;CONCENTRATION: 75,000 NG/ML; DOSE: 44NG/KG/MIN CONTINUOUSLY; PUMP RATE:82ML/D
     Route: 042
     Dates: start: 20100603
  3. FLOLAN [Suspect]
     Active Substance: EPOPROSTENOL SODIUM
     Dosage: 44 DF, CO
     Dates: end: 20150127
  4. REVATIO [Concomitant]
     Active Substance: SILDENAFIL CITRATE
  5. BUMEX [Concomitant]
     Active Substance: BUMETANIDE
  6. FLOLAN [Suspect]
     Active Substance: EPOPROSTENOL SODIUM
     Dosage: UNK
     Dates: start: 20100518
  7. COUMADIN [Concomitant]
     Active Substance: WARFARIN SODIUM
  8. FLOLAN [Suspect]
     Active Substance: EPOPROSTENOL SODIUM
     Dosage: UNK
     Dates: start: 20100518
  9. FLOLAN [Suspect]
     Active Substance: EPOPROSTENOL SODIUM
     Dosage: UNK
     Dates: start: 20100518
  10. ALDACTONE [Concomitant]
     Active Substance: SPIRONOLACTONE
  11. FLOLAN [Suspect]
     Active Substance: EPOPROSTENOL SODIUM
     Indication: PULMONARY HYPERTENSION
     Dosage: UNK
     Dates: start: 20100518
  12. ORENITRAM [Suspect]
     Active Substance: TREPROSTINIL
     Dosage: 14 MG, TID
     Route: 048
  13. ORENITRAM [Suspect]
     Active Substance: TREPROSTINIL
     Dosage: 15 MG, TID
     Route: 048
  14. LETAIRIS [Concomitant]
     Active Substance: AMBRISENTAN
  15. DICLOFENAC SODIUM. [Concomitant]
     Active Substance: DICLOFENAC SODIUM
  16. FLOLAN [Suspect]
     Active Substance: EPOPROSTENOL SODIUM
     Dosage: UNK
     Dates: start: 20100518
  17. HYTRIN [Concomitant]
     Active Substance: TERAZOSIN HYDROCHLORIDE
  18. FLOLAN [Suspect]
     Active Substance: EPOPROSTENOL SODIUM
     Dosage: 44 NG/KG/MIN CONTINUOUSLY; CONCENTRATION: 75,000 NG/ML; PUMP RATE: 82 ML/DAY; VIAL STRENGTH: 1.5 MG
     Dates: start: 20100603
  19. ORENITRAM [Suspect]
     Active Substance: TREPROSTINIL
     Indication: PULMONARY HYPERTENSION
     Dosage: 8 MG, TID
     Route: 048
  20. ORENITRAM [Suspect]
     Active Substance: TREPROSTINIL
     Dosage: 10 MG, TID
     Route: 048
  21. FLOLAN [Suspect]
     Active Substance: EPOPROSTENOL SODIUM
     Indication: COR PULMONALE CHRONIC
     Dosage: CONTINUOUS DOSING, VIAL STRENGTH: 1.5 MGCONCENTRATION: 75,000 NG/ML.44NG/KG/MIN, CONCENTRATION:[...]
     Route: 042
     Dates: start: 20100518
  22. FLOLAN [Suspect]
     Active Substance: EPOPROSTENOL SODIUM
     Dosage: 44 NG/KG/MIN CONTINUOUSLY; CONCENTRATION: 75,000 NG/ML; PUMP RATE: 82 ML/DAY; VIAL STRENGTH: 1.5 MG
     Dates: start: 20100219
  23. METOPROLOL [Concomitant]
     Active Substance: METOPROLOL

REACTIONS (25)
  - Staphylococcal infection [Recovered/Resolved]
  - Erythema [Recovered/Resolved]
  - Central venous catheterisation [Recovered/Resolved]
  - Medical device complication [Unknown]
  - Multiple allergies [Not Recovered/Not Resolved]
  - Nasopharyngitis [Unknown]
  - Nasal congestion [Unknown]
  - Tooth extraction [Recovered/Resolved]
  - Osteoarthritis [Unknown]
  - Night sweats [Unknown]
  - Cellulitis [Recovered/Resolved]
  - Localised infection [Recovered/Resolved]
  - Flushing [Unknown]
  - Device leakage [Recovered/Resolved]
  - Arthritis [Unknown]
  - Nausea [Unknown]
  - Euphoric mood [Unknown]
  - Wrong technique in product usage process [None]
  - Pneumonia [Recovered/Resolved]
  - Syncope [Recovered/Resolved]
  - Peripheral swelling [Recovered/Resolved]
  - Pain in extremity [Recovered/Resolved]
  - Influenza [Recovered/Resolved]
  - Adverse reaction [Unknown]
  - Seasonal allergy [Unknown]

NARRATIVE: CASE EVENT DATE: 20130213
